FAERS Safety Report 20320946 (Version 2)
Quarter: 2022Q3

REPORT INFORMATION
  Report Type: Report from Study
  Country: ES (occurrence: ES)
  Receive Date: 20220111
  Receipt Date: 20220708
  Transmission Date: 20221027
  Serious: Yes (Other)
  Sender: FDA-Public Use
  Company Number: ES-SUN PHARMACEUTICAL INDUSTRIES LTD-2021RR-320270

PATIENT
  Age: 76 Year
  Sex: Male

DRUGS (2)
  1. SONIDEGIB [Suspect]
     Active Substance: SONIDEGIB
     Indication: Basal cell carcinoma
     Dosage: 200 MILLIGRAM, DAILY
     Route: 048
     Dates: start: 20210709, end: 20210808
  2. LOSARTAN [Concomitant]
     Active Substance: LOSARTAN
     Indication: Pre-existing disease
     Dosage: 50 MILLIGRAM, DAILY
     Route: 048

REACTIONS (2)
  - Muscle spasms [Unknown]
  - Fatigue [Recovered/Resolved]

NARRATIVE: CASE EVENT DATE: 20210809
